FAERS Safety Report 5234269-0 (Version None)
Quarter: 2007Q1

REPORT INFORMATION
  Report Type: 
  Country: None (occurrence: None)
  Receive Date: 20070209
  Receipt Date: 20070129
  Transmission Date: 20070707
  Serious: Yes (Hospitalization)
  Sender: FDA-Public Use
  Company Number: PHEH2007US01422

PATIENT
  Age: 67 Year
  Sex: Female

DRUGS (3)
  1. TOBI [Suspect]
     Indication: PSEUDOMONAS INFECTION
     Dosage: 80 MG, QD
     Dates: start: 20060301, end: 20060701
  2. TOBI [Suspect]
     Dosage: 300 MG, QD
     Dates: start: 20060701, end: 20061228
  3. ALBUTEROL [Suspect]
     Indication: BRONCHIECTASIS
     Dosage: UNK, UNK
     Dates: start: 20060301, end: 20061228

REACTIONS (6)
  - ASTHENIA [None]
  - BRONCHIECTASIS [None]
  - MALAISE [None]
  - PHARMACEUTICAL PRODUCT COMPLAINT [None]
  - PSEUDOMONAS INFECTION [None]
  - RESPIRATORY DISORDER [None]
